FAERS Safety Report 7010888-6 (Version None)
Quarter: 2010Q3

REPORT INFORMATION
  Report Type: 
  Country: None (occurrence: None)
  Receive Date: 20100923
  Receipt Date: 20100923
  Transmission Date: 20110219
  Serious: Yes (Life-Threatening, Hospitalization)
  Sender: FDA-Public Use
  Company Number: None

PATIENT
  Age: 35 Year
  Sex: Female
  Weight: 58.9676 kg

DRUGS (1)
  1. NUVARING [Suspect]
     Indication: MENSTRUATION IRREGULAR
     Dosage: 1 RING EVERY 4 WEEKS VAG
     Route: 067
     Dates: start: 20100215, end: 20100901

REACTIONS (6)
  - BLINDNESS TRANSIENT [None]
  - COLLAPSE OF LUNG [None]
  - DIZZINESS [None]
  - PLEURISY [None]
  - PULMONARY EMBOLISM [None]
  - SYNCOPE [None]
